FAERS Safety Report 11876920 (Version 1)
Quarter: 2015Q4

REPORT INFORMATION
  Report Type: Spontaneous
  Country: US (occurrence: US)
  Receive Date: 20151229
  Receipt Date: 20151229
  Transmission Date: 20160305
  Serious: No
  Sender: FDA-Public Use
  Company Number: US-AKRIMAX-TIR-2015-0464

PATIENT
  Age: 62 Year
  Sex: Female
  Weight: 106.69 kg

DRUGS (7)
  1. LISINOPRIL. [Concomitant]
     Active Substance: LISINOPRIL
     Indication: BLOOD PRESSURE MEASUREMENT
  2. POLYETHELINE SOLUTION [Concomitant]
     Indication: CONSTIPATION PROPHYLAXIS
  3. TIROSINT [Suspect]
     Active Substance: LEVOTHYROXINE SODIUM
     Indication: HYPOTHYROIDISM
     Dosage: ONE 150MCG CAPSULE DAILY
     Route: 048
     Dates: start: 201507, end: 201508
  4. ATORVASTATIN [Concomitant]
     Active Substance: ATORVASTATIN
     Indication: BLOOD CHOLESTEROL
  5. TIROSINT [Suspect]
     Active Substance: LEVOTHYROXINE SODIUM
     Dosage: ONE 150MCG CAPSULE DAILY
     Route: 048
     Dates: start: 20151117, end: 20151119
  6. PANTOPRAZOLE [Concomitant]
     Active Substance: PANTOPRAZOLE SODIUM
     Indication: ABDOMINAL DISCOMFORT
  7. ASPIRIN. [Concomitant]
     Active Substance: ASPIRIN
     Indication: PRODUCT USED FOR UNKNOWN INDICATION
     Dosage: 81MG DAILY

REACTIONS (14)
  - Nausea [Recovered/Resolved]
  - Malaise [Recovering/Resolving]
  - Nausea [Recovering/Resolving]
  - Throat tightness [Recovering/Resolving]
  - Dyspepsia [Recovering/Resolving]
  - Cough [Recovering/Resolving]
  - Malaise [Recovered/Resolved]
  - Cough [Recovered/Resolved]
  - Swollen tongue [Recovering/Resolving]
  - Throat tightness [Recovered/Resolved]
  - Swollen tongue [Recovered/Resolved]
  - Dyspepsia [Recovered/Resolved]
  - Myalgia [Recovered/Resolved]
  - Myalgia [Not Recovered/Not Resolved]

NARRATIVE: CASE EVENT DATE: 201507
